FAERS Safety Report 17811050 (Version 1)
Quarter: 2020Q2

REPORT INFORMATION
  Report Type: Spontaneous
  Country: US (occurrence: US)
  Receive Date: 20200520
  Receipt Date: 20200520
  Transmission Date: 20200714
  Serious: Yes (Death)
  Sender: FDA-Public Use
  Company Number: None

PATIENT
  Age: 76 Year
  Sex: Male
  Weight: 83.4 kg

DRUGS (1)
  1. REMDESIVIR. [Suspect]
     Active Substance: REMDESIVIR
     Indication: COVID-19
     Route: 040
     Dates: start: 20200514, end: 20200516

REACTIONS (4)
  - Respiratory failure [None]
  - Septic shock [None]
  - Therapy cessation [None]
  - General physical health deterioration [None]

NARRATIVE: CASE EVENT DATE: 20200517
